FAERS Safety Report 20526586 (Version 1)
Quarter: 2022Q1

REPORT INFORMATION
  Report Type: Spontaneous
  Country: US (occurrence: None)
  Receive Date: 20220226
  Receipt Date: 20220226
  Transmission Date: 20220423
  Serious: Yes (Disabling)
  Sender: FDA-Public Use
  Company Number: None

PATIENT
  Sex: Female
  Weight: 87.75 kg

DRUGS (16)
  1. OZEMPIC [Suspect]
     Active Substance: SEMAGLUTIDE
     Indication: Insulin resistance
     Dosage: OTHER FREQUENCY : 1/WEEK;?
     Route: 058
     Dates: start: 20211216, end: 20220203
  2. NOVOLOG [Concomitant]
  3. ADDERALL XR [Concomitant]
     Active Substance: AMPHETAMINE ASPARTATE\AMPHETAMINE SULFATE\DEXTROAMPHETAMINE SACCHARATE\DEXTROAMPHETAMINE SULFATE
  4. DULOXETINE [Concomitant]
     Active Substance: DULOXETINE
  5. LEVONORGESTREL-ETHINYL ESTRADIOL [Concomitant]
  6. LESSINA-28 [Concomitant]
  7. ATORVASTATIN [Concomitant]
     Active Substance: ATORVASTATIN
  8. LOSARTAN [Concomitant]
     Active Substance: LOSARTAN
  9. VALACYCLOVIR [Concomitant]
     Active Substance: VALACYCLOVIR HYDROCHLORIDE
  10. BORIC ACID [Concomitant]
     Active Substance: BORIC ACID
  11. CETIRIZINE HCL (ZYRTEC ALLERGY PO) [Concomitant]
  12. VITAMINS [Concomitant]
     Active Substance: VITAMINS
  13. VITAMIN D [Concomitant]
     Active Substance: VITAMIN D NOS
  14. FE (FERROUS SULFATE) [Concomitant]
  15. FLUTICASONE [Concomitant]
  16. VYVANSE [Concomitant]
     Active Substance: LISDEXAMFETAMINE DIMESYLATE

REACTIONS (5)
  - Heart rate increased [None]
  - Dyspnoea exertional [None]
  - Chest discomfort [None]
  - Head discomfort [None]
  - Palpitations [None]
